FAERS Safety Report 13342506 (Version 1)
Quarter: 2017Q1

REPORT INFORMATION
  Report Type: Spontaneous
  Country: US (occurrence: US)
  Receive Date: 20170316
  Receipt Date: 20170316
  Transmission Date: 20170428
  Serious: Yes (Hospitalization, Other)
  Sender: FDA-Public Use
  Company Number: US-ELI_LILLY_AND_COMPANY-US201607012871

PATIENT
  Age: 54 Year

DRUGS (1)
  1. CYMBALTA [Suspect]
     Active Substance: DULOXETINE HYDROCHLORIDE
     Indication: PRODUCT USED FOR UNKNOWN INDICATION
     Dosage: UNK, UNKNOWN
     Route: 065

REACTIONS (39)
  - Apraxia [Unknown]
  - Obsessive thoughts [Unknown]
  - Delusion [Unknown]
  - Chest discomfort [Unknown]
  - Nausea [Unknown]
  - Cerebrovascular accident [Unknown]
  - Psychotic disorder [Unknown]
  - Drug withdrawal syndrome [Unknown]
  - Aphasia [Unknown]
  - Suicidal ideation [Unknown]
  - Hallucination, auditory [Unknown]
  - Sensory disturbance [Unknown]
  - Depression [Unknown]
  - Paraesthesia [Unknown]
  - Anxiety [Unknown]
  - Serotonin syndrome [Unknown]
  - Agitation [Unknown]
  - Affect lability [Unknown]
  - Paranoia [Unknown]
  - Insomnia [Unknown]
  - Tremor [Unknown]
  - Speech disorder [Unknown]
  - Vertigo [Unknown]
  - Irritability [Unknown]
  - Headache [Unknown]
  - Lethargy [Unknown]
  - Tinnitus [Unknown]
  - Seizure [Unknown]
  - Asthenia [Unknown]
  - Confusional state [Unknown]
  - Fear [Unknown]
  - Hallucination [Unknown]
  - Post-traumatic stress disorder [Unknown]
  - Fatigue [Unknown]
  - Dizziness [Unknown]
  - Subarachnoid haemorrhage [Unknown]
  - Auditory disorder [Unknown]
  - Diarrhoea [Unknown]
  - Hyperhidrosis [Unknown]

NARRATIVE: CASE EVENT DATE: 20111123
